FAERS Safety Report 6004271-X (Version None)
Quarter: 2008Q4

REPORT INFORMATION
  Report Type: 
  Country: None (occurrence: None)
  Receive Date: 20081216
  Receipt Date: 20081204
  Transmission Date: 20090506
  Serious: Yes (Other)
  Sender: FDA-Public Use
  Company Number: US-WYE-H05294108

PATIENT
  Sex: Female

DRUGS (2)
  1. PREMPHASE 14/14 [Suspect]
  2. FEMHRT [Suspect]

REACTIONS (1)
  - BREAST CANCER RECURRENT [None]
